FAERS Safety Report 13158304 (Version 2)
Quarter: 2017Q1

REPORT INFORMATION
  Report Type: Spontaneous
  Country: CO (occurrence: CO)
  Receive Date: 20170127
  Receipt Date: 20170222
  Transmission Date: 20170428
  Serious: Yes (Hospitalization, Other)
  Sender: FDA-Public Use
  Company Number: CO-PFIZER INC-2016556403

PATIENT
  Age: 73 Year
  Sex: Female

DRUGS (8)
  1. ESOMEPRAZOLE [Concomitant]
     Active Substance: ESOMEPRAZOLE
  2. VALSARTAN. [Concomitant]
     Active Substance: VALSARTAN
  3. HYDROCHLOROTHIAZIDE. [Concomitant]
     Active Substance: HYDROCHLOROTHIAZIDE
  4. MEDROL [Concomitant]
     Active Substance: METHYLPREDNISOLONE
  5. METOPROLOL. [Concomitant]
     Active Substance: METOPROLOL
  6. XELJANZ [Suspect]
     Active Substance: TOFACITINIB CITRATE
     Dosage: 5 MG, DAILY
  7. XELJANZ [Suspect]
     Active Substance: TOFACITINIB CITRATE
     Indication: RHEUMATOID ARTHRITIS
     Dosage: 5 MG, 2X/DAY
     Route: 048
     Dates: start: 201509
  8. CALCIUM + VIT D [Concomitant]
     Active Substance: CALCIUM\VITAMIN D

REACTIONS (5)
  - Cartilage injury [Not Recovered/Not Resolved]
  - Spinal fracture [Recovered/Resolved]
  - Activities of daily living impaired [Unknown]
  - Spinal disorder [Unknown]
  - Fall [Unknown]

NARRATIVE: CASE EVENT DATE: 2016
